FAERS Safety Report 10084671 (Version 1)
Quarter: 2014Q2

REPORT INFORMATION
  Report Type: Spontaneous
  Country: US (occurrence: None)
  Receive Date: 20140411
  Receipt Date: 20140411
  Transmission Date: 20141212
  Serious: Yes (Hospitalization)
  Sender: FDA-Public Use
  Company Number: ANTARES-2014-000060

PATIENT
  Age: 62 Year
  Sex: Male

DRUGS (3)
  1. OTREXUP [Suspect]
     Indication: OSTEOARTHRITIS
     Dosage: 15 MG. ONE TIME DOSE, SUBCUTANEOUS
     Route: 058
     Dates: start: 20140313, end: 20140314
  2. OTREXUP [Suspect]
     Indication: ANKYLOSING SPONDYLITIS
     Dosage: 15 MG. ONE TIME DOSE, SUBCUTANEOUS
     Route: 058
     Dates: start: 20140313, end: 20140314
  3. METHOTREXATE (METHOTREXATE) [Concomitant]

REACTIONS (4)
  - Rash [None]
  - Vomiting [None]
  - Faeces discoloured [None]
  - Fatigue [None]
